FAERS Safety Report 5091157-0 (Version None)
Quarter: 2006Q3

REPORT INFORMATION
  Report Type: 
  Country: None (occurrence: None)
  Receive Date: 20060824
  Receipt Date: 20060814
  Transmission Date: 20061208
  Serious: Yes (Other)
  Sender: FDA-Public Use
  Company Number: 2006099580

PATIENT
  Age: 57 Year
  Sex: Female
  Weight: 92.9874 kg

DRUGS (7)
  1. ZOLOFT [Suspect]
     Indication: DYSTHYMIC DISORDER
  2. LYRICA [Suspect]
     Indication: ANXIETY
     Dosage: 200 MG (200 MG, 1 IN D)
     Dates: start: 20060707
  3. LYRICA [Suspect]
     Indication: DRUG WITHDRAWAL SYNDROME
     Dosage: 200 MG (200 MG, 1 IN D)
     Dates: start: 20060707
  4. LYRICA [Suspect]
     Indication: SLEEP DISORDER
     Dosage: 200 MG (200 MG, 1 IN D)
     Dates: start: 20060707
  5. ATIVAN [Suspect]
  6. ANTIDEPRESSANTS (ANTIDEPRESSANTS) [Suspect]
  7. ALL OTHER THERAPEUTIC PRODUCTS (ALL OTHER THERAPEUTIC PRODUCTS) [Concomitant]

REACTIONS (13)
  - ALCOHOLISM [None]
  - APPETITE DISORDER [None]
  - CONSTIPATION [None]
  - DIARRHOEA [None]
  - DRUG DEPENDENCE [None]
  - DRUG INEFFECTIVE [None]
  - DRY MOUTH [None]
  - HEART RATE INCREASED [None]
  - INCORRECT DOSE ADMINISTERED [None]
  - INSOMNIA [None]
  - MOOD ALTERED [None]
  - SELF-MEDICATION [None]
  - WEIGHT INCREASED [None]
